FAERS Safety Report 6582362-2 (Version None)
Quarter: 2010Q1

REPORT INFORMATION
  Report Type: 
  Country: None (occurrence: None)
  Receive Date: 20100216
  Receipt Date: 20100209
  Transmission Date: 20100710
  Serious: Yes (Death, Other)
  Sender: FDA-Public Use
  Company Number: US-CELGENEUS-163-CCAZA-10020750

PATIENT
  Age: 83 Year
  Sex: Male

DRUGS (2)
  1. AZACITIDINE INJECTABLE [Suspect]
     Route: 058
     Dates: start: 20091214, end: 20100115
  2. PXD 101 [Suspect]
     Route: 051
     Dates: start: 20091214, end: 20100115

REACTIONS (3)
  - DEATH [None]
  - HAEMOGLOBIN DECREASED [None]
  - STAPHYLOCOCCAL BACTERAEMIA [None]
